FAERS Safety Report 15811781 (Version 2)
Quarter: 2019Q1

REPORT INFORMATION
  Report Type: Spontaneous
  Country: CA (occurrence: CA)
  Receive Date: 20190111
  Receipt Date: 20190228
  Transmission Date: 20190417
  Serious: Yes (Other)
  Sender: FDA-Public Use
  Company Number: CA-TEVA-2019-CA-997731

PATIENT

DRUGS (1)
  1. TEVA-SALBUTAMOL HFA [Suspect]
     Active Substance: ALBUTEROL
     Indication: PRODUCT USED FOR UNKNOWN INDICATION
     Dosage: FORMULATION: INHALATION, STRENGTH 100 MCG/DOSE
     Route: 055

REACTIONS (4)
  - Asphyxia [Unknown]
  - Foreign body in respiratory tract [Unknown]
  - Device issue [Unknown]
  - Wheezing [Unknown]
